FAERS Safety Report 4324825-6 (Version None)
Quarter: 2004Q1

REPORT INFORMATION
  Report Type: 
  Country: None (occurrence: None)
  Receive Date: 20040325
  Receipt Date: 20040325
  Transmission Date: 20041129
  Serious: No
  Sender: FDA-Public Use
  Company Number: None

PATIENT
  Age: 76 Year
  Sex: Male
  Weight: 65.7716 kg

DRUGS (7)
  1. DOBUTAMINE HCL [Suspect]
     Indication: ASTHENIA
     Dosage: 5 MCG/KG IV
     Route: 042
     Dates: start: 20040302, end: 20040305
  2. DOBUTAMINE HCL [Suspect]
     Indication: CARDIAC FAILURE CONGESTIVE
     Dosage: 5 MCG/KG IV
     Route: 042
     Dates: start: 20040302, end: 20040305
  3. TORSEMIDE [Concomitant]
  4. COUMADIN [Concomitant]
  5. LOSARTAN [Concomitant]
  6. DIGOXIN [Concomitant]
  7. FUROSEMIDE [Concomitant]

REACTIONS (2)
  - INFUSION SITE ERYTHEMA [None]
  - PHARMACEUTICAL PRODUCT COMPLAINT [None]
